FAERS Safety Report 6015760-6 (Version None)
Quarter: 2008Q4

REPORT INFORMATION
  Report Type: 
  Country: None (occurrence: None)
  Receive Date: 20081222
  Receipt Date: 20081118
  Transmission Date: 20090506
  Serious: No
  Sender: FDA-Public Use
  Company Number: US-BAYER-200814484BCC

PATIENT
  Sex: Female

DRUGS (1)
  1. ALEVE-D SINUS + COLD [Suspect]
     Indication: SINUS CONGESTION
     Route: 048

REACTIONS (1)
  - SINUS CONGESTION [None]
